FAERS Safety Report 23752477 (Version 1)
Quarter: 2024Q2

REPORT INFORMATION
  Report Type: Spontaneous
  Country: IN (occurrence: IN)
  Receive Date: 20240417
  Receipt Date: 20240417
  Transmission Date: 20240716
  Serious: Yes (Other)
  Sender: FDA-Public Use
  Company Number: IN-002147023-NVSC2024IN074325

PATIENT

DRUGS (1)
  1. RUXOLITINIB [Suspect]
     Active Substance: RUXOLITINIB
     Indication: Product used for unknown indication
     Dosage: 5 MG, QD
     Route: 048
     Dates: start: 20230924

REACTIONS (6)
  - Febrile neutropenia [Unknown]
  - Cystitis haemorrhagic [Unknown]
  - Pneumonia [Unknown]
  - Mucosal inflammation [Unknown]
  - Paronychia [Unknown]
  - Off label use [Unknown]

NARRATIVE: CASE EVENT DATE: 20230924
